FAERS Safety Report 11981602 (Version 1)
Quarter: 2016Q1

REPORT INFORMATION
  Report Type: Spontaneous
  Country: IN (occurrence: IN)
  Receive Date: 20160131
  Receipt Date: 20160131
  Transmission Date: 20160526
  Serious: Yes (Other)
  Sender: FDA-Public Use
  Company Number: IN-ROXANE LABORATORIES, INC.-2016-RO-00149RO

PATIENT
  Age: 35 Year
  Sex: Male

DRUGS (2)
  1. DISULFIRAM TABLETS USP [Suspect]
     Active Substance: DISULFIRAM
     Indication: ALCOHOLISM
     Dosage: 500 MG
     Route: 065
  2. DISULFIRAM TABLETS USP [Suspect]
     Active Substance: DISULFIRAM
     Dosage: 250 MG
     Route: 065

REACTIONS (1)
  - Seizure [Recovered/Resolved]
